FAERS Safety Report 16711262 (Version 5)
Quarter: 2019Q4

REPORT INFORMATION
  Report Type: Report from Study
  Country: US (occurrence: US)
  Receive Date: 20190816
  Receipt Date: 20191030
  Transmission Date: 20200122
  Serious: Yes (Hospitalization, Other)
  Sender: FDA-Public Use
  Company Number: PHEH2019US033781

PATIENT
  Sex: Male

DRUGS (1)
  1. GILENYA [Suspect]
     Active Substance: FINGOLIMOD HYDROCHLORIDE
     Indication: MULTIPLE SCLEROSIS
     Dosage: 0.5 MG, QD
     Route: 048

REACTIONS (6)
  - Neoplasm malignant [Unknown]
  - Feeling abnormal [Unknown]
  - Anaphylactic reaction [Unknown]
  - Adverse food reaction [Recovering/Resolving]
  - Abdominal pain upper [Unknown]
  - Nausea [Unknown]
